FAERS Safety Report 6396726-3 (Version None)
Quarter: 2009Q4

REPORT INFORMATION
  Report Type: 
  Country: None (occurrence: None)
  Receive Date: 20091008
  Receipt Date: 20091008
  Transmission Date: 20100525
  Serious: Yes (Other)
  Sender: FDA-Public Use
  Company Number: None

PATIENT
  Age: 66 Year
  Sex: Female
  Weight: 53.5244 kg

DRUGS (1)
  1. DICYCLOMINE [Suspect]
     Indication: DIVERTICULUM
     Dosage: 1 PILL 2X/DAY
     Dates: start: 20090904, end: 20091006

REACTIONS (1)
  - RASH PRURITIC [None]
